FAERS Safety Report 18219990 (Version 1)
Quarter: 2020Q3

REPORT INFORMATION
  Report Type: Other
  Country: US (occurrence: US)
  Receive Date: 20200902
  Receipt Date: 20200902
  Transmission Date: 20201103
  Serious: Yes (Hospitalization, Other)
  Sender: FDA-Public Use
  Company Number: US-EYWA PHARMA INC.-2089306

PATIENT
  Age: 46 Year
  Sex: Male

DRUGS (9)
  1. CEFTAZIDIME. [Concomitant]
     Active Substance: CEFTAZIDIME
     Route: 065
  2. LINEZOLID. [Concomitant]
     Active Substance: LINEZOLID
     Route: 065
  3. AMIKACIN SULFATE. [Concomitant]
     Active Substance: AMIKACIN SULFATE
     Route: 065
  4. MEROPENEM. [Concomitant]
     Active Substance: MEROPENEM
     Route: 065
  5. POLYMYXIN B. [Concomitant]
     Active Substance: POLYMYXIN B
     Route: 065
  6. BACLOFEN. [Suspect]
     Active Substance: BACLOFEN
     Indication: PRODUCT USED FOR UNKNOWN INDICATION
     Route: 065
  7. DAPTOMYCIN. [Concomitant]
     Active Substance: DAPTOMYCIN
     Route: 065
  8. METRONIDAZOLE. [Concomitant]
     Active Substance: METRONIDAZOLE
     Route: 065
  9. LEVOFLOXACIN. [Concomitant]
     Active Substance: LEVOFLOXACIN
     Route: 065

REACTIONS (3)
  - Asthenia [Unknown]
  - Toxicity to various agents [Recovering/Resolving]
  - Dizziness [Unknown]
